FAERS Safety Report 4281079-7 (Version None)
Quarter: 2004Q1

REPORT INFORMATION
  Report Type: 
  Country: None (occurrence: None)
  Receive Date: 20040123
  Receipt Date: 20030721
  Transmission Date: 20041129
  Serious: Yes (Hospitalization, Other)
  Sender: FDA-Public Use
  Company Number: HQWYE123022JUL03

PATIENT
  Age: 83 Year
  Sex: Female
  Weight: 49.94 kg

DRUGS (9)
  1. CORDARONE [Suspect]
     Indication: ATRIAL FIBRILLATION
     Dosage: 200 MG 3X PER 1 DAY, ORAL
     Route: 048
     Dates: start: 20030709, end: 20030719
  2. LEXAPRO [Concomitant]
  3. COUMADIN [Concomitant]
  4. LOPRESSOR [Concomitant]
  5. FERROUS SULFATE TAB [Concomitant]
  6. COLACE (DOCUSATE SODIUM) [Concomitant]
  7. HYZAAR [Concomitant]
  8. DARVOCET (DEXTROPROPOXYPHENE/PARACETAMOL) [Concomitant]
  9. DULCOLAX [Concomitant]

REACTIONS (1)
  - INAPPROPRIATE ANTIDIURETIC HORMONE SECRETION [None]
